FAERS Safety Report 12139398 (Version 4)
Quarter: 2018Q4

REPORT INFORMATION
  Report Type: Spontaneous
  Country: BR (occurrence: BR)
  Receive Date: 20160303
  Receipt Date: 20181212
  Transmission Date: 20190204
  Serious: Yes (Hospitalization)
  Sender: FDA-Public Use
  Company Number: BR-AMGEN-BRASP2016004127

PATIENT
  Age: 83 Year
  Sex: Female
  Weight: 63 kg

DRUGS (14)
  1. ENBREL [Suspect]
     Active Substance: ETANERCEPT
     Indication: RHEUMATIC DISORDER
     Dosage: 50 MG, QWK
     Route: 065
  2. LOSARTAN. [Concomitant]
     Active Substance: LOSARTAN
     Dosage: UNK
  3. ENBREL [Suspect]
     Active Substance: ETANERCEPT
     Indication: RHEUMATOID ARTHRITIS
     Dosage: 50 MG, WEEKLY
     Route: 065
     Dates: start: 201511
  4. GLICLAZIDE [Concomitant]
     Active Substance: GLICLAZIDE
     Dosage: UNK
     Dates: start: 2001
  5. VERTIZINE D [Concomitant]
     Active Substance: DIHYDROERGOCRISTINE
     Dosage: UNK
     Dates: start: 2001
  6. LASIX [Concomitant]
     Active Substance: FUROSEMIDE
     Dosage: UNK
     Dates: start: 2001
  7. CLORANA [Concomitant]
     Active Substance: HYDROCHLOROTHIAZIDE
     Dosage: UNK
     Dates: start: 2001
  8. LASIX [Concomitant]
     Active Substance: FUROSEMIDE
     Dosage: UNK
     Dates: start: 2001
  9. INSULIN [Concomitant]
     Active Substance: INSULIN NOS
     Dosage: UNK
  10. AAS [Concomitant]
     Active Substance: ASPIRIN
     Dosage: UNK
     Dates: start: 2001
  11. TRAYENTA [Concomitant]
     Active Substance: LINAGLIPTIN
     Dosage: UNK
     Dates: start: 2001
  12. OMEPRAZOLE. [Concomitant]
     Active Substance: OMEPRAZOLE
     Dosage: UNK
     Dates: start: 2001
  13. SIMVASTATIN. [Concomitant]
     Active Substance: SIMVASTATIN
     Dosage: UNK
  14. ENBREL [Suspect]
     Active Substance: ETANERCEPT
     Dosage: 50 MG, WEEKLY
     Route: 065

REACTIONS (10)
  - Oedema peripheral [Recovered/Resolved]
  - Injection site erythema [Recovered/Resolved]
  - Peripheral swelling [Recovered/Resolved]
  - Malabsorption from injection site [Recovered/Resolved]
  - Injection site vesicles [Unknown]
  - Erysipelas [Recovered/Resolved]
  - Joint swelling [Recovered/Resolved]
  - Injection site pruritus [Recovered/Resolved]
  - Condition aggravated [Recovered/Resolved]
  - Product complaint [Recovered/Resolved]

NARRATIVE: CASE EVENT DATE: 20181013
